FAERS Safety Report 6859620-7 (Version None)
Quarter: 2010Q3

REPORT INFORMATION
  Report Type: 
  Country: None (occurrence: None)
  Receive Date: 20100719
  Receipt Date: 20090217
  Transmission Date: 20110219
  Serious: No
  Sender: FDA-Public Use
  Company Number: US-PFIZER INC-2008015068

PATIENT
  Sex: Female
  Weight: 108.39 kg

DRUGS (9)
  1. CHANTIX [Suspect]
     Indication: SMOKING CESSATION THERAPY
     Dosage: UNK
     Route: 048
     Dates: start: 20070419
  2. AVANDIA [Concomitant]
     Indication: DIABETES MELLITUS
     Dosage: UNK
  3. PRAVASTATIN [Concomitant]
     Indication: BLOOD CHOLESTEROL INCREASED
     Dosage: UNK
  4. ACCUPRIL [Concomitant]
     Dosage: UNK
  5. PREDNISONE [Concomitant]
     Indication: CHRONIC OBSTRUCTIVE PULMONARY DISEASE
     Dosage: UNK
  6. METFORMIN [Concomitant]
     Dosage: UNK
  7. GLUCOTROL [Concomitant]
     Dosage: UNK
  8. XANAX [Concomitant]
     Dosage: UNK
  9. AMITRIPTYLINE [Concomitant]
     Dosage: UNK

REACTIONS (5)
  - ABNORMAL DREAMS [None]
  - COUGH [None]
  - DRUG INEFFECTIVE [None]
  - NAUSEA [None]
  - WEIGHT INCREASED [None]
